FAERS Safety Report 6363251-5 (Version None)
Quarter: 2009Q3

REPORT INFORMATION
  Report Type: 
  Country: None (occurrence: None)
  Receive Date: 20090919
  Receipt Date: 20090618
  Transmission Date: 20100115
  Serious: No
  Sender: FDA-Public Use
  Company Number: US-ABBOTT-09P-163-0581069-00

PATIENT
  Sex: Female
  Weight: 83.082 kg

DRUGS (8)
  1. HUMIRA [Suspect]
     Indication: RHEUMATOID ARTHRITIS
     Route: 058
     Dates: start: 20070101, end: 20090501
  2. LISINOPRIL [Concomitant]
     Indication: HYPERTENSION
     Dosage: 20/12.5
     Route: 048
  3. KLOR-CON [Concomitant]
     Indication: ELECTROLYTE SUBSTITUTION THERAPY
     Route: 048
  4. LUFLUNOMIDE [Concomitant]
     Indication: RHEUMATOID ARTHRITIS
     Route: 048
  5. PREDNISONE [Concomitant]
     Indication: RHEUMATOID ARTHRITIS
  6. PRILOSEC OTC [Concomitant]
     Indication: GASTROOESOPHAGEAL REFLUX DISEASE
     Route: 048
  7. FISH OIL [Concomitant]
     Indication: MEDICAL DIET
     Route: 048
  8. CENTRUM [Concomitant]
     Indication: MEDICAL DIET
     Route: 048

REACTIONS (12)
  - ASTHENIA [None]
  - DYSURIA [None]
  - MICTURITION URGENCY [None]
  - PAIN [None]
  - POLLAKIURIA [None]
  - PRODUCTIVE COUGH [None]
  - PYREXIA [None]
  - RHINORRHOEA [None]
  - SINUSITIS [None]
  - SOMNOLENCE [None]
  - UPPER RESPIRATORY TRACT INFECTION [None]
  - URINARY TRACT INFECTION [None]
